FAERS Safety Report 8158369-0 (Version None)
Quarter: 2012Q1

REPORT INFORMATION
  Report Type: 
  Country: None (occurrence: None)
  Receive Date: 20120221
  Receipt Date: 20120208
  Transmission Date: 20120608
  Serious: Yes (Death, Hospitalization, Other)
  Sender: FDA-Public Use
  Company Number: AUR-APL-2012-00662

PATIENT
  Age: 54 Year
  Sex: Male

DRUGS (5)
  1. PYRIMETHAMINE TAB [Suspect]
     Indication: TOXOPLASMOSIS
     Dosage: UNKNOWN
  2. INSULIN [Concomitant]
  3. DEXAMETHASONE [Suspect]
     Indication: BRAIN OEDEMA
     Dosage: UNKNOWN
  4. DAPSONE [Suspect]
     Indication: PNEUMOCYSTIS JIROVECI PNEUMONIA
     Dosage: UNKNOWN
  5. CLINDAMYCIN [Suspect]
     Indication: TOXOPLASMOSIS
     Dosage: UNKNOWN

REACTIONS (15)
  - TOXICITY TO VARIOUS AGENTS [None]
  - EXOPHTHALMOS [None]
  - EYELID PTOSIS [None]
  - ZYGOMYCOSIS [None]
  - GENERAL PHYSICAL HEALTH DETERIORATION [None]
  - RESPIRATORY FAILURE [None]
  - BLINDNESS UNILATERAL [None]
  - DIABETIC KETOACIDOSIS [None]
  - BONE MARROW FAILURE [None]
  - PANCYTOPENIA [None]
  - OPHTHALMOPLEGIA [None]
  - SINUS DISORDER [None]
  - NASAL TURBINATE ABNORMALITY [None]
  - MENTAL IMPAIRMENT [None]
  - HAEMODYNAMIC INSTABILITY [None]
